FAERS Safety Report 24262900 (Version 1)
Quarter: 2024Q3

REPORT INFORMATION
  Report Type: Spontaneous
  Country: RU (occurrence: RU)
  Receive Date: 20240829
  Receipt Date: 20240829
  Transmission Date: 20241017
  Serious: Yes (Death, Hospitalization)
  Sender: NOVARTIS
  Company Number: RU-002147023-NVSC2024RU172404

PATIENT
  Sex: Female

DRUGS (3)
  1. ALPELISIB [Suspect]
     Active Substance: ALPELISIB
     Indication: Breast cancer metastatic
     Dosage: 300 MG, QD (ONCE PER DAY AFTER MEAL)
     Route: 048
     Dates: start: 202311, end: 20240822
  2. FULVESTRANT [Concomitant]
     Active Substance: FULVESTRANT
     Indication: Product used for unknown indication
     Dosage: UNK
     Route: 065
  3. DENOSUMAB [Concomitant]
     Active Substance: DENOSUMAB
     Indication: Product used for unknown indication
     Dosage: UNK
     Route: 065

REACTIONS (5)
  - Pleurisy [Fatal]
  - Hepatic failure [Fatal]
  - Malignant neoplasm progression [Unknown]
  - Pain [Unknown]
  - Bone lesion [Unknown]

NARRATIVE: CASE EVENT DATE: 20240822
